FAERS Safety Report 6404003-7 (Version None)
Quarter: 2009Q4

REPORT INFORMATION
  Report Type: 
  Country: None (occurrence: None)
  Receive Date: 20091016
  Receipt Date: 20090807
  Transmission Date: 20100525
  Serious: No
  Sender: FDA-Public Use
  Company Number: US-ALEXION-A200900639

PATIENT
  Sex: Male

DRUGS (10)
  1. SOLIRIS [Suspect]
     Indication: PAROXYSMAL NOCTURNAL HAEMOGLOBINURIA
     Dosage: 600 MG, QW
     Route: 042
     Dates: start: 20090709, end: 20090701
  2. SOLIRIS [Suspect]
     Dosage: UNK
     Route: 042
  3. PREDNISONE [Concomitant]
     Dosage: 40 MG, UNK
     Route: 048
  4. PREDNISONE [Concomitant]
     Dosage: 20 MG, QOD
     Route: 048
  5. COUMADIN [Concomitant]
     Route: 048
  6. IRON [Concomitant]
     Route: 048
  7. FOLATE [Concomitant]
     Route: 048
  8. VITAMIN A [Concomitant]
     Route: 048
  9. CALCIUM [Concomitant]
     Route: 048
  10. FISH OIL [Concomitant]
     Route: 048

REACTIONS (3)
  - FEELING ABNORMAL [None]
  - NASOPHARYNGITIS [None]
  - POSTNASAL DRIP [None]
